FAERS Safety Report 14768734 (Version 3)
Quarter: 2018Q2

REPORT INFORMATION
  Report Type: Spontaneous
  Country: JP (occurrence: JP)
  Receive Date: 20180417
  Receipt Date: 20180510
  Transmission Date: 20180711
  Serious: Yes (Hospitalization, Other)
  Sender: FDA-Public Use
  Company Number: JP-APOTEX-2018AP010009

PATIENT
  Age: 56 Year
  Sex: Female

DRUGS (5)
  1. PITAVASTATIN. [Suspect]
     Active Substance: PITAVASTATIN CALCIUM
     Dosage: UNK
     Route: 065
  2. URSODEOXYCHOLIC ACID [Concomitant]
     Active Substance: URSODIOL
     Dosage: 600 MG, UNK
     Route: 048
  3. STRONGER NEO-MINOPHAGEN C          /02058101/ [Concomitant]
     Dosage: 60 ML, UNK
     Route: 042
  4. ALPRAZOLAM. [Suspect]
     Active Substance: ALPRAZOLAM
     Dosage: UNK
     Route: 065
  5. PAXIL [Suspect]
     Active Substance: PAROXETINE HYDROCHLORIDE
     Dosage: UNK
     Route: 048

REACTIONS (7)
  - Decreased appetite [Recovering/Resolving]
  - Ocular icterus [Unknown]
  - Autoimmune hepatitis [Recovering/Resolving]
  - Abdominal pain upper [Unknown]
  - Hepatic function abnormal [Recovering/Resolving]
  - Malaise [Recovering/Resolving]
  - Jaundice hepatocellular [Unknown]

NARRATIVE: CASE EVENT DATE: 201507
